FAERS Safety Report 10686166 (Version 1)
Quarter: 2014Q4

REPORT INFORMATION
  Report Type: Spontaneous
  Country: RU (occurrence: RU)
  Receive Date: 20141231
  Receipt Date: 20141231
  Transmission Date: 20150529
  Serious: Yes (Other)
  Sender: FDA-Public Use
  Company Number: RU-ASTRAZENECA-2014SE99359

PATIENT
  Age: 74 Year
  Sex: Female

DRUGS (3)
  1. ATACAND [Suspect]
     Active Substance: CANDESARTAN CILEXETIL
     Indication: HYPERTENSION
     Route: 048
  2. BETALOC ZOK [Concomitant]
     Active Substance: METOPROLOL SUCCINATE
     Route: 048
  3. PHYSIOTENS [Concomitant]
     Active Substance: MOXONIDINE
     Route: 048

REACTIONS (3)
  - Drug ineffective [Unknown]
  - Blood pressure increased [Unknown]
  - Hypertensive crisis [Unknown]
